FAERS Safety Report 8791793 (Version 1)
Quarter: 2012Q4

REPORT INFORMATION
  Report Type: 
  Country: FR (occurrence: FR)
  Receive Date: 20120918
  Receipt Date: 20120918
  Transmission Date: 20130627
  Serious: Yes (Hospitalization)
  Sender: FDA-Public Use
  Company Number: FR-BAYER-2012-095794

PATIENT
  Age: 34 Year
  Sex: Female

DRUGS (2)
  1. IZILOX [Suspect]
     Dosage: 400 mg, ONCE
     Route: 048
     Dates: start: 2006
  2. CONTRACEPTIVES NOS [Concomitant]

REACTIONS (2)
  - Anaphylactoid reaction [Recovered/Resolved]
  - Skin test negative [Unknown]
